FAERS Safety Report 10172835 (Version 2)
Quarter: 2014Q2

REPORT INFORMATION
  Report Type: Spontaneous
  Country: US (occurrence: US)
  Receive Date: 20140515
  Receipt Date: 20140521
  Transmission Date: 20141212
  Serious: Yes (Other)
  Sender: FDA-Public Use
  Company Number: US-GLAXOSMITHKLINE-A1073190A

PATIENT
  Age: 61 Year
  Sex: Female

DRUGS (1)
  1. MEPRON [Suspect]
     Indication: RENAL TRANSPLANT
     Dosage: 750MG UNKNOWN
     Route: 065
     Dates: start: 201404

REACTIONS (1)
  - Renal surgery [Unknown]
